FAERS Safety Report 9302544 (Version 2)
Quarter: 2013Q2

REPORT INFORMATION
  Report Type: Spontaneous
  Country: US (occurrence: US)
  Receive Date: 20130522
  Receipt Date: 20130611
  Transmission Date: 20140414
  Serious: Yes (Hospitalization, Other)
  Sender: FDA-Public Use
  Company Number: US-AMGEN-USASP2013035433

PATIENT
  Age: 68 Year
  Sex: Female

DRUGS (2)
  1. ENBREL [Suspect]
     Indication: RHEUMATOID ARTHRITIS
     Dosage: 25 MG, 2 TIMES/WK
     Route: 065
     Dates: start: 19990301, end: 201305
  2. CORTISONE [Concomitant]
     Dosage: UNK

REACTIONS (10)
  - Aortic aneurysm [Recovered/Resolved]
  - Hospitalisation [Recovered/Resolved]
  - Wrist fracture [Recovered/Resolved]
  - Breast cancer [Not Recovered/Not Resolved]
  - Polypectomy [Recovered/Resolved]
  - Scoliosis [Unknown]
  - Spinal column stenosis [Unknown]
  - Squamous cell carcinoma [Recovered/Resolved]
  - Memory impairment [Not Recovered/Not Resolved]
  - Cataract [Recovered/Resolved]
